FAERS Safety Report 5976681-8 (Version None)
Quarter: 2008Q4

REPORT INFORMATION
  Report Type: 
  Country: None (occurrence: None)
  Receive Date: 20081201
  Receipt Date: 20081201
  Transmission Date: 20090506
  Serious: No
  Sender: FDA-Public Use
  Company Number: None

PATIENT
  Sex: Male
  Weight: 84.369 kg

DRUGS (1)
  1. SOTALOL HCL [Suspect]
     Indication: ATRIAL FIBRILLATION
     Dosage: 80 MG 2X A DAY
     Dates: start: 20081009, end: 20081103

REACTIONS (4)
  - AURICULAR SWELLING [None]
  - EYE SWELLING [None]
  - PRURITUS [None]
  - SWELLING FACE [None]
